FAERS Safety Report 8032736-8 (Version None)
Quarter: 2012Q1

REPORT INFORMATION
  Report Type: 
  Country: None (occurrence: None)
  Receive Date: 20120110
  Receipt Date: 20120103
  Transmission Date: 20120608
  Serious: Yes (Hospitalization)
  Sender: FDA-Public Use
  Company Number: US-BAYER-2011-038222

PATIENT
  Age: 30 Year
  Sex: Female
  Weight: 72.562 kg

DRUGS (19)
  1. AMBIEN [Concomitant]
     Dosage: 10 MG, UNK
     Route: 048
     Dates: start: 20050511
  2. KEFLEX [Concomitant]
     Dosage: UNK
     Route: 048
     Dates: start: 20050516
  3. TYLENOL W/ CODEINE [Concomitant]
     Dosage: UNK
     Route: 048
     Dates: start: 20050525
  4. YASMIN [Suspect]
     Indication: CONTRACEPTION
     Dosage: UNK
     Dates: start: 20041210, end: 20090129
  5. DROSPIRENONE AND ETHINYL ESTRADIOL [Suspect]
     Indication: PREMENSTRUAL SYNDROME
  6. PHENTERMINE [Concomitant]
     Dosage: UNK
     Route: 048
     Dates: start: 20011009, end: 20070101
  7. NEXIUM [Concomitant]
     Dosage: 20 MG, UNK
     Route: 048
     Dates: start: 20050510
  8. PERCOCET [Concomitant]
     Dosage: UNK
     Route: 048
     Dates: start: 20050504
  9. YASMIN [Suspect]
     Indication: PREMENSTRUAL SYNDROME
  10. DROSPIRENONE AND ETHINYL ESTRADIOL [Suspect]
     Indication: AMENORRHOEA
  11. YASMIN [Suspect]
     Indication: MENSTRUATION IRREGULAR
     Dosage: UNK
     Dates: start: 20090820
  12. DROSPIRENONE AND ETHINYL ESTRADIOL [Suspect]
     Indication: CONTRACEPTION
     Dosage: UNK
     Dates: start: 20090224, end: 20090721
  13. PROPOXYPHENE HCL AND ACETAMINOPHEN [Concomitant]
     Dosage: UNK
     Route: 048
     Dates: start: 20050520
  14. YASMIN [Suspect]
     Indication: AMENORRHOEA
  15. DROSPIRENONE AND ETHINYL ESTRADIOL [Suspect]
     Indication: MENSTRUATION IRREGULAR
     Dosage: UNK
     Dates: start: 20090921
  16. CEPHALEXIN [Concomitant]
     Dosage: 500 MG, UNK
     Route: 048
     Dates: start: 20050504
  17. ROBAXIN [Concomitant]
     Dosage: 750 MG, UNK
     Route: 048
     Dates: start: 20050504
  18. MEPERGAN [Concomitant]
     Dosage: UNK
     Route: 048
     Dates: start: 20050504
  19. CEFAZOLIN [Concomitant]
     Dosage: UNK
     Route: 048
     Dates: start: 20050602

REACTIONS (8)
  - DEEP VEIN THROMBOSIS [None]
  - INJURY [None]
  - EMOTIONAL DISTRESS [None]
  - PAIN IN EXTREMITY [None]
  - ANXIETY [None]
  - PAIN [None]
  - OEDEMA PERIPHERAL [None]
  - GENERAL PHYSICAL HEALTH DETERIORATION [None]
